FAERS Safety Report 6767455-9 (Version None)
Quarter: 2010Q2

REPORT INFORMATION
  Report Type: 
  Country: None (occurrence: None)
  Receive Date: 20100611
  Receipt Date: 20100611
  Transmission Date: 20101027
  Serious: No
  Sender: FDA-Public Use
  Company Number: None

PATIENT
  Age: 43 Year
  Sex: Female
  Weight: 97.5234 kg

DRUGS (2)
  1. CYCLOBENAZPRINE [Suspect]
     Indication: MUSCLE SPASMS
     Dosage: 10 MG. 3X/DAY PO
     Route: 048
     Dates: start: 20100607, end: 20100610
  2. CYCLOBENAZPRINE [Suspect]
     Indication: NECK PAIN
     Dosage: 10 MG. 3X/DAY PO
     Route: 048
     Dates: start: 20100607, end: 20100610

REACTIONS (4)
  - DRUG INEFFECTIVE [None]
  - PRODUCT COUNTERFEIT [None]
  - PRODUCT QUALITY ISSUE [None]
  - PRODUCT SUBSTITUTION ISSUE [None]
